FAERS Safety Report 8259060-2 (Version None)
Quarter: 2012Q2

REPORT INFORMATION
  Report Type: 
  Country: None (occurrence: None)
  Receive Date: 20120404
  Receipt Date: 20120322
  Transmission Date: 20120825
  Serious: Yes (Other)
  Sender: FDA-Public Use
  Company Number: FR-ROCHE-1047878

PATIENT
  Sex: Female

DRUGS (7)
  1. ATENOLOL [Concomitant]
  2. ACTEMRA [Suspect]
     Indication: RHEUMATOID ARTHRITIS
     Dates: start: 20120228
  3. FOLIC ACID [Concomitant]
  4. LERCANIDIPINE [Concomitant]
  5. METHOTREXATE [Concomitant]
  6. PREDNISOLONE [Concomitant]
  7. NEXIUM [Concomitant]

REACTIONS (1)
  - PULMONARY EMBOLISM [None]
